FAERS Safety Report 5410293-X (Version None)
Quarter: 2007Q3

REPORT INFORMATION
  Report Type: 
  Country: None (occurrence: None)
  Receive Date: 20070808
  Receipt Date: 20070727
  Transmission Date: 20080115
  Serious: Yes (Hospitalization)
  Sender: FDA-Public Use
  Company Number: 17089

PATIENT
  Age: 62 Year
  Sex: Female
  Weight: 81.6 kg

DRUGS (14)
  1. NIPENT [Suspect]
     Indication: CHRONIC LYMPHOCYTIC LEUKAEMIA
     Dosage: 4 MG/M2 Q21DAYS
     Dates: start: 20070403, end: 20070717
  2. CYCLOPHOSPHAMID. MFR: NOT SPECIFIED [Suspect]
     Indication: CHRONIC LYMPHOCYTIC LEUKAEMIA
     Dosage: 600 MG/M2 Q21 DAYS
     Dates: start: 20070403, end: 20070717
  3. RITUXAN [Suspect]
     Indication: CHRONIC LYMPHOCYTIC LEUKAEMIA
     Dosage: 375 MG/M2 Q21DAYS
     Dates: start: 20070403, end: 20070717
  4. GLIPIZIDE [Concomitant]
  5. MULTI-VITAMIN [Concomitant]
  6. GLUCOPHAGE [Concomitant]
  7. ALLEGRA [Concomitant]
  8. ALLOPURINOL [Concomitant]
  9. ACYCLOVIR [Concomitant]
  10. BACTRIM DS [Concomitant]
  11. COMPAZINE [Concomitant]
  12. LROAZEPAM [Concomitant]
  13. METFORMIN HCL [Concomitant]
  14. ALTACE [Concomitant]

REACTIONS (5)
  - ANAEMIA [None]
  - BLOOD THYROID STIMULATING HORMONE INCREASED [None]
  - PRESYNCOPE [None]
  - SYNCOPE VASOVAGAL [None]
  - THROMBOCYTOPENIA [None]
